FAERS Safety Report 5191145-X (Version None)
Quarter: 2006Q4

REPORT INFORMATION
  Report Type: 
  Country: None (occurrence: None)
  Receive Date: 20061226
  Receipt Date: 20061214
  Transmission Date: 20070319
  Serious: Yes (Other)
  Sender: FDA-Public Use
  Company Number: PHBS2006GT19346

PATIENT
  Age: 52 Year
  Sex: Female

DRUGS (2)
  1. ZELMAC [Suspect]
     Indication: IRRITABLE BOWEL SYNDROME
     Dosage: 6 MG, BID
     Route: 048
     Dates: start: 20060601, end: 20060801
  2. PANTECTA [Concomitant]
     Dosage: 40 MG/DAY
     Route: 048
     Dates: start: 20060705, end: 20060901

REACTIONS (1)
  - GOITRE [None]
